FAERS Safety Report 5013681-9 (Version None)
Quarter: 2006Q2

REPORT INFORMATION
  Report Type: 
  Country: None (occurrence: None)
  Receive Date: 20060525
  Receipt Date: 20060515
  Transmission Date: 20061013
  Serious: Yes (Death)
  Sender: FDA-Public Use
  Company Number: 2006-DE-02469GD

PATIENT
  Age: 50 Year
  Sex: Male

DRUGS (10)
  1. PREDNISONE TAB [Suspect]
     Indication: NON-HODGKIN'S LYMPHOMA
  2. CYCLOPHOSPHAMIDE [Suspect]
     Indication: NON-HODGKIN'S LYMPHOMA
  3. ZIDOVUDINE [Suspect]
     Indication: HIV INFECTION
  4. METHOTREXATE [Suspect]
     Indication: NERVOUS SYSTEM DISORDER
     Dosage: IT
     Route: 037
  5. METHOTREXATE [Suspect]
     Indication: PROPHYLAXIS
     Dosage: IT
     Route: 037
  6. ADRIAMYCIN PFS [Suspect]
     Indication: NON-HODGKIN'S LYMPHOMA
  7. VINCRISTINE [Suspect]
     Indication: NON-HODGKIN'S LYMPHOMA
  8. DIDANOSINE [Suspect]
     Indication: HIV INFECTION
  9. CYTARABINE [Suspect]
     Indication: NERVOUS SYSTEM DISORDER
     Dosage: IT
     Route: 037
  10. CYTARABINE [Suspect]
     Indication: PROPHYLAXIS
     Dosage: IT
     Route: 037

REACTIONS (1)
  - DEATH [None]
